FAERS Safety Report 24659107 (Version 1)
Quarter: 2024Q4

REPORT INFORMATION
  Report Type: Spontaneous
  Country: GB (occurrence: GB)
  Receive Date: 20241125
  Receipt Date: 20241125
  Transmission Date: 20250115
  Serious: Yes (Other)
  Sender: INSUD PHARMA
  Company Number: None

PATIENT
  Age: 45 Year
  Sex: Female
  Weight: 88 kg

DRUGS (1)
  1. PROGESTERONE [Suspect]
     Active Substance: PROGESTERONE
     Indication: Hormone replacement therapy
     Dosage: 200 MILLIGRAM, QD
     Dates: start: 20240430

REACTIONS (1)
  - Sleep disorder [Recovered/Resolved]

NARRATIVE: CASE EVENT DATE: 20240430
